FAERS Safety Report 21243222 (Version 2)
Quarter: 2022Q3

REPORT INFORMATION
  Report Type: Other
  Country: AU (occurrence: AU)
  Receive Date: 20220823
  Receipt Date: 20220913
  Transmission Date: 20221027
  Serious: Yes (Other)
  Sender: FDA-Public Use
  Company Number: AU-HORMOSAN PHARMA GMBH-2022-10346

PATIENT
  Sex: Male

DRUGS (5)
  1. RAMIPRIL [Suspect]
     Active Substance: RAMIPRIL
     Indication: Product used for unknown indication
     Dosage: UNK
     Route: 065
     Dates: start: 2017
  2. OLANZAPINE [Suspect]
     Active Substance: OLANZAPINE
     Indication: Product used for unknown indication
     Dosage: UNK
     Route: 065
     Dates: start: 2016
  3. ARIPIPRAZOLE [Suspect]
     Active Substance: ARIPIPRAZOLE
     Indication: Product used for unknown indication
     Dosage: UNK
     Route: 065
     Dates: start: 2016
  4. BISOPROLOL [Suspect]
     Active Substance: BISOPROLOL
     Indication: Product used for unknown indication
     Dosage: UNK
     Route: 065
     Dates: start: 2017
  5. PALIPERIDONE [Suspect]
     Active Substance: PALIPERIDONE
     Indication: Product used for unknown indication
     Dosage: UNK
     Route: 065
     Dates: start: 2017

REACTIONS (4)
  - Haemorrhoids [Unknown]
  - Rectal prolapse [Unknown]
  - Constipation [Unknown]
  - Chest pain [Unknown]

NARRATIVE: CASE EVENT DATE: 20160101
